FAERS Safety Report 19878654 (Version 3)
Quarter: 2021Q4

REPORT INFORMATION
  Report Type: Spontaneous
  Country: JP (occurrence: JP)
  Receive Date: 20210924
  Receipt Date: 20211201
  Transmission Date: 20220303
  Serious: Yes (Other)
  Sender: FDA-Public Use
  Company Number: JP-NOVARTISPH-NVSJ2021JP010433

PATIENT
  Age: 74 Year
  Sex: Female
  Weight: 66.8 kg

DRUGS (12)
  1. METFORMIN HYDROCHLORIDE\VILDAGLIPTIN [Suspect]
     Active Substance: METFORMIN HYDROCHLORIDE\VILDAGLIPTIN
     Indication: Type 2 diabetes mellitus
     Dosage: 1 DF: METFORMIN HYDROCHLORIDE 500MG/ VILDAGLIPTIN 50MG, BID
     Route: 048
     Dates: start: 20210526, end: 20210606
  2. METFORMIN HYDROCHLORIDE\VILDAGLIPTIN [Suspect]
     Active Substance: METFORMIN HYDROCHLORIDE\VILDAGLIPTIN
     Dosage: 1 DF: METFORMIN HYDROCHLORIDE 250MG/ VILDAGLIPTIN 50MG, BID
     Route: 048
     Dates: start: 20210616, end: 20210727
  3. METFORMIN HYDROCHLORIDE\VILDAGLIPTIN [Suspect]
     Active Substance: METFORMIN HYDROCHLORIDE\VILDAGLIPTIN
     Dosage: 1 DF: METFORMIN HYDROCHLORIDE 500MG/ VILDAGLIPTIN 50MG, BID
     Route: 048
     Dates: start: 20210802, end: 20210902
  4. METFORMIN HYDROCHLORIDE\VILDAGLIPTIN [Suspect]
     Active Substance: METFORMIN HYDROCHLORIDE\VILDAGLIPTIN
     Dosage: METFORMIN HYDROCHLORIDE 250MG/ VILDAGLIPTIN 50MG
     Route: 048
     Dates: start: 20210903
  5. CEFAZOLIN [Suspect]
     Active Substance: CEFAZOLIN
     Indication: Tonsillitis
     Dosage: 2 G
     Route: 042
     Dates: start: 20210609, end: 20210622
  6. CEFAZOLIN [Suspect]
     Active Substance: CEFAZOLIN
     Indication: Cellulitis
     Dosage: UNK
     Route: 065
     Dates: start: 20210901
  7. TRULICITY [Suspect]
     Active Substance: DULAGLUTIDE
     Indication: Type 2 diabetes mellitus
     Dosage: UNK
     Route: 065
     Dates: start: 20210606, end: 20210616
  8. ROSUVASTATIN [Concomitant]
     Active Substance: ROSUVASTATIN
     Indication: Dyslipidaemia
     Dosage: 2.5 MG, QD
     Route: 048
     Dates: start: 20210521
  9. CLOPIDOGREL [Concomitant]
     Active Substance: CLOPIDOGREL BISULFATE
     Indication: Cerebral infarction
     Dosage: 75 MG, QD
     Route: 048
     Dates: start: 20210521
  10. TELMISARTAN AND AMLODIPINE [Concomitant]
     Active Substance: AMLODIPINE BESYLATE\TELMISARTAN
     Indication: Hypertension
     Dosage: UNK UNK, QD
     Route: 048
     Dates: start: 20210521
  11. ICOSAPENT ETHYL [Concomitant]
     Active Substance: ICOSAPENT ETHYL
     Indication: Dyslipidaemia
     Dosage: 900 MG, BID
     Route: 048
     Dates: start: 20210521, end: 20210602
  12. REPAGLINIDE [Concomitant]
     Active Substance: REPAGLINIDE
     Indication: Type 2 diabetes mellitus
     Dosage: UNK UNK, BID
     Route: 048
     Dates: start: 20210607, end: 20210615

REACTIONS (8)
  - Cellulitis [Recovered/Resolved]
  - Pyrexia [Unknown]
  - Vomiting [Unknown]
  - Diarrhoea [Recovered/Resolved]
  - Constipation [Recovered/Resolved]
  - Vomiting [Recovered/Resolved]
  - Vomiting [Recovered/Resolved]
  - Tonsillitis [Recovered/Resolved]

NARRATIVE: CASE EVENT DATE: 20210601
